FAERS Safety Report 9250823 (Version 3)
Quarter: 2013Q2

REPORT INFORMATION
  Report Type: Spontaneous
  Country: JP (occurrence: JP)
  Receive Date: 20130424
  Receipt Date: 20130520
  Transmission Date: 20140414
  Serious: Yes (Life-Threatening, Hospitalization)
  Sender: FDA-Public Use
  Company Number: PHHY2013JP038568

PATIENT
  Age: 65 Year
  Sex: Female

DRUGS (10)
  1. CICLOSPORIN [Suspect]
     Indication: PYODERMA GANGRENOSUM
     Dosage: 150 MG, DAILY
     Route: 048
     Dates: start: 20120729, end: 20120828
  2. CICLOSPORIN [Suspect]
     Dosage: 150 MG, DAILY
     Route: 048
     Dates: start: 20120907
  3. PREDONINE [Concomitant]
     Indication: PYODERMA GANGRENOSUM
     Dosage: 40 MG,
     Route: 048
     Dates: start: 20120729
  4. GASTER [Concomitant]
     Indication: PROPHYLAXIS
     Dosage: 40 MG
     Route: 048
     Dates: start: 20090729, end: 20120726
  5. BAKTAR [Concomitant]
     Indication: PROPHYLAXIS
     Dosage: 0.5 MG
     Route: 048
     Dates: start: 20090729
  6. BENET [Concomitant]
     Indication: PROPHYLAXIS
     Route: 048
     Dates: start: 20090729
  7. PARIET [Concomitant]
     Indication: PROPHYLAXIS
     Dosage: 10 MG
     Route: 048
     Dates: start: 20120727
  8. MICARDIS [Concomitant]
     Indication: HYPERTENSION
     Dosage: 20 MG
     Route: 048
     Dates: start: 20120413
  9. AMLODIN OD [Concomitant]
     Indication: HYPERTENSION
     Dosage: 5 MG
     Route: 048
     Dates: start: 20120803
  10. STEROIDS NOS [Concomitant]

REACTIONS (9)
  - Pancytopenia [Recovered/Resolved]
  - Pyoderma gangrenosum [Recovered/Resolved]
  - Pneumonia [Recovered/Resolved]
  - Histiocytosis haematophagic [Recovered/Resolved]
  - Respiratory disorder [Recovering/Resolving]
  - Pyrexia [Recovering/Resolving]
  - Hypoxia [Recovering/Resolving]
  - Dehydration [Unknown]
  - Renal impairment [Recovered/Resolved]
